FAERS Safety Report 21450624 (Version 2)
Quarter: 2022Q4

REPORT INFORMATION
  Report Type: Spontaneous
  Country: IN (occurrence: IN)
  Receive Date: 20221013
  Receipt Date: 20221013
  Transmission Date: 20230112
  Serious: Yes (Hospitalization, Other)
  Sender: FDA-Public Use
  Company Number: IN-PFIZER INC-PV202200075224

PATIENT
  Age: 4 Decade
  Sex: Male

DRUGS (4)
  1. DOXORUBICIN HYDROCHLORIDE [Suspect]
     Active Substance: DOXORUBICIN HYDROCHLORIDE
     Indication: Hodgkin^s disease
     Dosage: UNK, CYCLIC (2 CYCLE)
  2. BLEOMYCIN [Concomitant]
     Active Substance: BLEOMYCIN SULFATE
     Indication: Hodgkin^s disease
     Dosage: UNK, CYCLIC (2 CYCLE)
  3. VINBLASTINE [Concomitant]
     Active Substance: VINBLASTINE
     Indication: Hodgkin^s disease
     Dosage: UNK, CYCLIC (2 CYCLE)
  4. DACARBAZINE [Concomitant]
     Active Substance: DACARBAZINE
     Indication: Hodgkin^s disease
     Dosage: UNK, CYCLIC (2 CYCLE)

REACTIONS (1)
  - Atrioventricular block complete [Recovering/Resolving]
